FAERS Safety Report 7079375-3 (Version None)
Quarter: 2010Q4

REPORT INFORMATION
  Report Type: 
  Country: None (occurrence: None)
  Receive Date: 20101102
  Receipt Date: 20101025
  Transmission Date: 20110411
  Serious: Yes (Other)
  Sender: FDA-Public Use
  Company Number: US-JNJCH-2010024445

PATIENT
  Age: 44 Year
  Sex: Male
  Weight: 79.4 kg

DRUGS (2)
  1. LISTERINE TOTAL CARE PLUS WHITENING [Suspect]
     Indication: DENTAL DISORDER PROPHYLAXIS
     Dosage: TEXT:LESS THAN HALF A CAPFUL-FREQ:AT LEAST 6 HOURS APART
     Route: 048
     Dates: start: 20101021, end: 20101023
  2. SYNTHROID [Concomitant]
     Indication: THYROID DISORDER
     Dosage: TEXT:UNKNOWN
     Route: 065

REACTIONS (3)
  - APPLICATION SITE BURN [None]
  - APPLICATION SITE VESICLES [None]
  - SWELLING [None]
